FAERS Safety Report 9059368 (Version 1)
Quarter: 2013Q1

REPORT INFORMATION
  Report Type: Spontaneous
  Country: BR (occurrence: BR)
  Receive Date: 20130211
  Receipt Date: 20130211
  Transmission Date: 20140127
  Serious: Yes (Other)
  Sender: FDA-Public Use
  Company Number: CHNY2012BR000735

PATIENT
  Age: 27 Year
  Sex: Male

DRUGS (1)
  1. NICOTINELL TTS [Suspect]
     Indication: SMOKING CESSATION THERAPY
     Dosage: 1 DF, QD
     Route: 062
     Dates: start: 20121211

REACTIONS (2)
  - Petechiae [Unknown]
  - Erythema [Unknown]
